FAERS Safety Report 6003690-5 (Version None)
Quarter: 2008Q4

REPORT INFORMATION
  Report Type: 
  Country: None (occurrence: None)
  Receive Date: 20081216
  Receipt Date: 20080611
  Transmission Date: 20090506
  Serious: No
  Sender: FDA-Public Use
  Company Number: US-AMGEN-KDL286424

PATIENT
  Sex: Male

DRUGS (7)
  1. ARANESP [Suspect]
     Indication: RENAL TRANSPLANT
     Route: 058
  2. NIFEDIPINE [Concomitant]
     Route: 048
  3. ENALAPRIL MALEATE [Concomitant]
     Route: 048
  4. BACTRIM DS [Concomitant]
     Route: 048
     Dates: start: 20080425
  5. ZOLPIDEM [Concomitant]
     Route: 048
  6. PREDNISONE TAB [Concomitant]
     Route: 048
  7. UNSPECIFIED MEDICATION [Concomitant]

REACTIONS (2)
  - INJECTION SITE IRRITATION [None]
  - INJECTION SITE PAIN [None]
